FAERS Safety Report 18640887 (Version 1)
Quarter: 2020Q4

REPORT INFORMATION
  Report Type: Spontaneous
  Country: JP (occurrence: JP)
  Receive Date: 20201221
  Receipt Date: 20201221
  Transmission Date: 20210114
  Serious: Yes (Other)
  Sender: FDA-Public Use
  Company Number: JP-ABBVIE-20K-087-3630395-00

PATIENT
  Age: 27 Year
  Sex: Female

DRUGS (5)
  1. POPSCAINE [Suspect]
     Active Substance: LEVOBUPIVACAINE HYDROCHLORIDE
     Dosage: POPSCAINE 0.25% 100ML?3 ML PER HOUR, 200 ML.
     Route: 065
     Dates: start: 2020, end: 2020
  2. ATROPINE SULFATE HYDRATE [Concomitant]
     Active Substance: ATROPINE SULFATE
     Indication: PRODUCT USED FOR UNKNOWN INDICATION
  3. SUGAMMADEX SODIUM [Concomitant]
     Active Substance: SUGAMMADEX SODIUM
     Indication: PRODUCT USED FOR UNKNOWN INDICATION
  4. POPSCAINE [Suspect]
     Active Substance: LEVOBUPIVACAINE HYDROCHLORIDE
     Indication: EPIDURAL ANAESTHESIA
     Dosage: POPSCAINE 0.25% 10ML?20 ML, SINGLE DOSE
     Route: 008
     Dates: start: 20201009, end: 20201009
  5. PROPOFOL. [Concomitant]
     Active Substance: PROPOFOL
     Indication: PRODUCT USED FOR UNKNOWN INDICATION

REACTIONS (5)
  - Motor dysfunction [Unknown]
  - Facial paralysis [Unknown]
  - Joint range of motion decreased [Unknown]
  - Tremor [Unknown]
  - Seizure [Unknown]

NARRATIVE: CASE EVENT DATE: 20201009
